FAERS Safety Report 15636890 (Version 2)
Quarter: 2018Q4

REPORT INFORMATION
  Report Type: Spontaneous
  Country: FR (occurrence: FR)
  Receive Date: 20181120
  Receipt Date: 20181128
  Transmission Date: 20190205
  Serious: Yes (Life-Threatening, Hospitalization, Other)
  Sender: FDA-Public Use
  Company Number: FR-BAYER-2018-208758

PATIENT
  Age: 81 Year
  Sex: Female
  Weight: 80 kg

DRUGS (9)
  1. ASPIRIN PROTECT [Suspect]
     Active Substance: ASPIRIN
     Dosage: UNK
  2. LOVENOX [Suspect]
     Active Substance: ENOXAPARIN SODIUM
     Indication: VEIN DISORDER
     Dosage: 0.4 ML, UNK
     Route: 065
  3. PLAVIX [Suspect]
     Active Substance: CLOPIDOGREL BISULFATE
     Indication: PRODUCT USED FOR UNKNOWN INDICATION
     Dosage: UNK
     Route: 065
  4. PLAVIX [Suspect]
     Active Substance: CLOPIDOGREL BISULFATE
     Indication: PRODUCT USED FOR UNKNOWN INDICATION
     Dosage: 75 MG, QD
     Route: 065
     Dates: start: 201304, end: 201304
  5. ANGIOMAX [Suspect]
     Active Substance: BIVALIRUDIN
     Indication: CORONARY ANGIOPLASTY
     Dosage: .75 MG/KG, UNK
     Route: 040
     Dates: start: 20130425, end: 20130425
  6. ANGIOMAX [Suspect]
     Active Substance: BIVALIRUDIN
     Indication: CORONARY ANGIOPLASTY
     Dosage: 1.75 MG/KG, UNK
     Route: 042
     Dates: start: 20130425, end: 20130425
  7. ASPIRIN PROTECT [Suspect]
     Active Substance: ASPIRIN
     Dosage: 75 MG, QD
     Route: 065
     Dates: start: 201304, end: 201304
  8. LOVENOX [Suspect]
     Active Substance: ENOXAPARIN SODIUM
     Indication: VEIN DISORDER
     Dosage: 0.4 MG, QD
     Route: 058
     Dates: start: 20130425, end: 20130426
  9. LOVENOX [Suspect]
     Active Substance: ENOXAPARIN SODIUM
     Indication: VEIN DISORDER
     Dosage: .7 ML, UNK
     Route: 065
     Dates: start: 20130425, end: 20130425

REACTIONS (7)
  - Blood pressure decreased [Recovered/Resolved]
  - Shock haemorrhagic [Recovered/Resolved]
  - Catheter site haematoma [Recovered/Resolved]
  - Dyspnoea [Recovered/Resolved]
  - Off label use [Unknown]
  - Tachycardia [Recovered/Resolved]
  - Vascular pseudoaneurysm [Recovered/Resolved]

NARRATIVE: CASE EVENT DATE: 20130426
